FAERS Safety Report 6154306-9 (Version None)
Quarter: 2009Q2

REPORT INFORMATION
  Report Type: 
  Country: None (occurrence: None)
  Receive Date: 20090414
  Receipt Date: 20090407
  Transmission Date: 20091009
  Serious: Yes (Hospitalization)
  Sender: FDA-Public Use
  Company Number: US-JNJFOC-20090402213

PATIENT
  Sex: Female
  Weight: 99.79 kg

DRUGS (5)
  1. FENTANYL TRANSDERMAL SYSTEM [Suspect]
     Route: 062
  2. FENTANYL TRANSDERMAL SYSTEM [Suspect]
     Route: 062
  3. FENTANYL TRANSDERMAL SYSTEM [Suspect]
     Indication: ARTHRALGIA
     Route: 062
  4. DETROL LA [Concomitant]
     Indication: INCONTINENCE
     Route: 048
  5. VALIUM [Concomitant]
     Indication: NERVOUSNESS
     Route: 048

REACTIONS (8)
  - ADVERSE EVENT [None]
  - DRUG INEFFECTIVE [None]
  - INAPPROPRIATE SCHEDULE OF DRUG ADMINISTRATION [None]
  - PAIN [None]
  - PERICARDIAL EFFUSION [None]
  - PLEURAL EFFUSION [None]
  - SKIN DISCOLOURATION [None]
  - WEIGHT DECREASED [None]
